FAERS Safety Report 18354221 (Version 1)
Quarter: 2020Q4

REPORT INFORMATION
  Report Type: Spontaneous
  Country: US (occurrence: US)
  Receive Date: 20201007
  Receipt Date: 20201007
  Transmission Date: 20210114
  Serious: Yes (Other)
  Sender: FDA-Public Use
  Company Number: US-ROCHE-2624539

PATIENT
  Age: 59 Year
  Sex: Female

DRUGS (2)
  1. XELODA [Suspect]
     Active Substance: CAPECITABINE
     Indication: BREAST CANCER
     Route: 048
     Dates: start: 202005
  2. XELODA [Suspect]
     Active Substance: CAPECITABINE
     Dosage: ONGOING
     Route: 048
     Dates: start: 202005

REACTIONS (9)
  - Nausea [Unknown]
  - Skin discolouration [Unknown]
  - Odynophagia [Unknown]
  - Skin exfoliation [Recovered/Resolved]
  - Palmar-plantar erythrodysaesthesia syndrome [Unknown]
  - Vomiting [Unknown]
  - Oral pain [Unknown]
  - Oral mucosal discolouration [Unknown]
  - Candida infection [Unknown]

NARRATIVE: CASE EVENT DATE: 20200616
